FAERS Safety Report 21505173 (Version 1)
Quarter: 2022Q4

REPORT INFORMATION
  Report Type: Report from Study
  Country: LB (occurrence: LB)
  Receive Date: 20221026
  Receipt Date: 20221026
  Transmission Date: 20230112
  Serious: Yes (Hospitalization)
  Sender: FDA-Public Use
  Company Number: LB-GBT-016708

PATIENT
  Age: 4 Year
  Sex: Female
  Weight: 11.5 kg

DRUGS (7)
  1. VOXELOTOR [Suspect]
     Active Substance: VOXELOTOR
     Indication: Sickle cell disease
     Dosage: DATE OF LAST DOSE OF STUDY DRUG BEFORE ONSET OF EVENT 03-OCT-2022
     Dates: start: 20220919, end: 20220920
  2. FOLIC ACID [Concomitant]
     Active Substance: FOLIC ACID
     Indication: Sickle cell disease
     Dosage: ONCE
     Route: 048
     Dates: start: 20210816
  3. AMOXICILLIN [Concomitant]
     Active Substance: AMOXICILLIN
     Indication: Sickle cell disease
     Dosage: ONCE
     Dates: start: 20210816
  4. AUGMENTIN [Concomitant]
     Active Substance: AMOXICILLIN\CLAVULANATE POTASSIUM
     Indication: Tonsillitis
     Route: 048
     Dates: start: 20220916, end: 20220921
  5. PROFINAL [Concomitant]
     Indication: Sickle cell anaemia with crisis
     Dosage: TIME INTERVAL: 0.33333333 DAYS
     Route: 048
     Dates: start: 20220916, end: 20220921
  6. ACETAMINOPHEN [Concomitant]
     Active Substance: ACETAMINOPHEN
     Indication: Sickle cell anaemia with crisis
     Route: 054
     Dates: start: 20220916, end: 20220921
  7. CLARITHROMYCIN [Concomitant]
     Active Substance: CLARITHROMYCIN
     Indication: Peripheral swelling
     Route: 048
     Dates: start: 20220930

REACTIONS (4)
  - Acute chest syndrome [Recovered/Resolved]
  - Sickle cell anaemia with crisis [Recovered/Resolved]
  - Acute chest syndrome [Recovered/Resolved]
  - Pleural effusion [Recovered/Resolved]

NARRATIVE: CASE EVENT DATE: 20220921
